FAERS Safety Report 8445394-5 (Version None)
Quarter: 2012Q2

REPORT INFORMATION
  Report Type: 
  Country: None (occurrence: None)
  Receive Date: 20120618
  Receipt Date: 20111031
  Transmission Date: 20120825
  Serious: No
  Sender: FDA-Public Use
  Company Number: US-TEVA-2011005600

PATIENT
  Age: 59 Year
  Sex: Female
  Weight: 59.02 kg

DRUGS (3)
  1. FENTANYL [Suspect]
     Indication: BREAKTHROUGH PAIN
     Route: 060
  2. FENTANYL [Suspect]
  3. CLONIDINE [Suspect]

REACTIONS (4)
  - HYPERHIDROSIS [None]
  - CHEST DISCOMFORT [None]
  - WITHDRAWAL SYNDROME [None]
  - PALPITATIONS [None]
